FAERS Safety Report 7628909-6 (Version None)
Quarter: 2011Q3

REPORT INFORMATION
  Report Type: 
  Country: None (occurrence: None)
  Receive Date: 20110722
  Receipt Date: 20110718
  Transmission Date: 20111222
  Serious: Yes (Other)
  Sender: FDA-Public Use
  Company Number: US-PFIZER INC-2011162202

PATIENT
  Sex: Male

DRUGS (7)
  1. SUTENT [Suspect]
     Dosage: 25 MG, 1X/DAY
     Route: 048
  2. GLIMEPIRIDE [Concomitant]
     Dosage: 2 MG, UNK
     Route: 048
  3. LISINOPRIL [Concomitant]
     Dosage: 2.5 MG, UNK
     Route: 048
  4. ACTOS [Concomitant]
     Dosage: 15 MG, UNK
     Route: 048
  5. FUROSEMIDE [Concomitant]
     Dosage: 20 MG, UNK
     Route: 048
  6. ACETYLSALICYLIC ACID [Concomitant]
     Dosage: 81 MG, UNK
     Route: 048
  7. CRESTOR [Concomitant]
     Dosage: 10 MG, UNK
     Route: 048

REACTIONS (5)
  - CLAVICLE FRACTURE [None]
  - DIARRHOEA [None]
  - IMPAIRED HEALING [None]
  - FALL [None]
  - DECREASED APPETITE [None]
